FAERS Safety Report 12393100 (Version 1)
Quarter: 2016Q2

REPORT INFORMATION
  Report Type: Spontaneous
  Country: US (occurrence: None)
  Receive Date: 20160520
  Receipt Date: 20160520
  Transmission Date: 20160815
  Serious: No
  Sender: FDA-Public Use
  Company Number: None

PATIENT
  Age: 31 Year
  Sex: Female
  Weight: 47.63 kg

DRUGS (3)
  1. ASPIRIN CARTIA [Concomitant]
     Active Substance: ASPIRIN
  2. FLUTICASONE, 50 MG WOCKHARDT USA [Suspect]
     Active Substance: FLUTICASONE\FLUTICASONE PROPIONATE
     Indication: EAR DISCOMFORT
     Dosage: 1 SPRAY(S) ONCE A DAY NASAL
     Dates: start: 20160514, end: 20160519
  3. CARTIA XT [Concomitant]
     Active Substance: DILTIAZEM HYDROCHLORIDE

REACTIONS (4)
  - Dyspepsia [None]
  - Diarrhoea [None]
  - Abdominal pain upper [None]
  - Pain [None]

NARRATIVE: CASE EVENT DATE: 20160517
